FAERS Safety Report 12667583 (Version 1)
Quarter: 2016Q3

REPORT INFORMATION
  Report Type: Report from Study
  Country: US (occurrence: US)
  Receive Date: 20160819
  Receipt Date: 20160819
  Transmission Date: 20161109
  Serious: Yes (Hospitalization, Other)
  Sender: FDA-Public Use
  Company Number: US-BAYER-2016-147283

PATIENT
  Age: 15 Year
  Sex: Male

DRUGS (2)
  1. ADEMPAS [Suspect]
     Active Substance: RIOCIGUAT
     Indication: PULMONARY ARTERIAL HYPERTENSION
     Dosage: 1 MG, TID
     Route: 048
     Dates: start: 20160701
  2. ADEMPAS [Suspect]
     Active Substance: RIOCIGUAT
     Indication: PULMONARY ARTERIAL HYPERTENSION
     Dosage: 2 MG, TID
     Route: 048
     Dates: start: 20160713

REACTIONS (11)
  - Pain in jaw [Recovered/Resolved]
  - Drug administered to patient of inappropriate age [None]
  - Heart rate increased [None]
  - Cyanosis [None]
  - Headache [Recovered/Resolved]
  - Oxygen saturation decreased [None]
  - Early satiety [None]
  - Pain in extremity [None]
  - Dyspnoea [None]
  - Pain in extremity [Recovered/Resolved]
  - Nausea [None]

NARRATIVE: CASE EVENT DATE: 20160723
